FAERS Safety Report 6416203-0 (Version None)
Quarter: 2009Q4

REPORT INFORMATION
  Report Type: 
  Country: None (occurrence: None)
  Receive Date: 20091027
  Receipt Date: 20091016
  Transmission Date: 20100525
  Serious: Yes (Hospitalization)
  Sender: FDA-Public Use
  Company Number: FR-PFIZER INC-2009284064

PATIENT
  Age: 38 Year

DRUGS (2)
  1. CELEBREX [Suspect]
     Indication: PAIN
     Dosage: UNK
     Route: 048
     Dates: end: 20090721
  2. TOPALGIC [Suspect]
     Indication: PAIN
     Dosage: UNK
     Route: 048
     Dates: end: 20090721

REACTIONS (1)
  - DEVICE RELATED INFECTION [None]
